FAERS Safety Report 7001157-9 (Version None)
Quarter: 2010Q3

REPORT INFORMATION
  Report Type: 
  Country: None (occurrence: None)
  Receive Date: 20100920
  Receipt Date: 20100908
  Transmission Date: 20110219
  Serious: Yes (Other)
  Sender: FDA-Public Use
  Company Number: US-ROCHE-724075

PATIENT
  Sex: Female

DRUGS (1)
  1. BONIVA [Suspect]
     Indication: OSTEOPOROSIS
     Dosage: FORM: PILLS
     Route: 048
     Dates: start: 20100601, end: 20100701

REACTIONS (3)
  - BLOOD PRESSURE INCREASED [None]
  - CONFUSIONAL STATE [None]
  - HEADACHE [None]
